FAERS Safety Report 8811502 (Version 2)
Quarter: 2012Q4

REPORT INFORMATION
  Report Type: 
  Country: US (occurrence: US)
  Receive Date: 20120927
  Receipt Date: 20121107
  Transmission Date: 20130627
  Serious: Yes (Hospitalization, Other)
  Sender: FDA-Public Use
  Company Number: US-SANOFI-AVENTIS-2012SA068779

PATIENT
  Age: 58 Year
  Sex: Male
  Weight: 88 kg

DRUGS (5)
  1. PLAVIX [Suspect]
     Indication: STENT PLACEMENT
     Dosage: started Plavix 10-12 years ago.
     Route: 048
     Dates: start: 2003
  2. AMLODIPINE [Concomitant]
     Dates: start: 2003
  3. COREG [Concomitant]
     Dates: start: 2003
  4. PRAVACHOL [Concomitant]
     Dates: start: 2003
  5. ACEON [Concomitant]
     Dates: start: 2003

REACTIONS (6)
  - Coronary artery disease [Recovered/Resolved]
  - Catheterisation cardiac [Unknown]
  - Coronary arterial stent insertion [Recovered/Resolved]
  - Transplant failure [Unknown]
  - Chest pain [Recovered/Resolved]
  - Product odour abnormal [Unknown]
